FAERS Safety Report 4268826-5 (Version None)
Quarter: 2004Q1

REPORT INFORMATION
  Report Type: 
  Country: None (occurrence: None)
  Receive Date: 20040109
  Receipt Date: 20031231
  Transmission Date: 20041129
  Serious: Yes (Death)
  Sender: FDA-Public Use
  Company Number: AU-JNJFOC-20031202461

PATIENT
  Age: 71 Year
  Sex: Female

DRUGS (9)
  1. REMINYL [Suspect]
     Dosage: 4 MG, 2 IN 1 DAY
  2. ENALAPRIL MALEATE [Concomitant]
  3. NORVASC [Concomitant]
  4. LASIX [Concomitant]
  5. SLOW-K [Concomitant]
  6. TEGRETOL [Concomitant]
  7. MYSOLINE [Concomitant]
  8. CHLORPROMAZINE [Concomitant]
  9. WARFARIN SODIUM [Concomitant]

REACTIONS (2)
  - AORTIC ANEURYSM RUPTURE [None]
  - GASTRIC PERFORATION [None]
